FAERS Safety Report 17268532 (Version 1)
Quarter: 2020Q1

REPORT INFORMATION
  Report Type: Spontaneous
  Country: US (occurrence: US)
  Receive Date: 20200114
  Receipt Date: 20200114
  Transmission Date: 20200409
  Serious: Yes (Hospitalization, Other)
  Sender: FDA-Public Use
  Company Number: US-JNJFOC-20200117875

PATIENT
  Age: 38 Year
  Sex: Male

DRUGS (1)
  1. INVOKANA [Suspect]
     Active Substance: CANAGLIFLOZIN
     Indication: PRODUCT USED FOR UNKNOWN INDICATION
     Route: 048

REACTIONS (7)
  - Extremity necrosis [Unknown]
  - Diabetic foot infection [Unknown]
  - Extremity necrosis [Unknown]
  - Diabetic foot [Unknown]
  - Gangrene [Unknown]
  - Limb injury [Unknown]
  - Toe amputation [Unknown]

NARRATIVE: CASE EVENT DATE: 20140512
